FAERS Safety Report 8068919-0 (Version None)
Quarter: 2012Q1

REPORT INFORMATION
  Report Type: 
  Country: None (occurrence: None)
  Receive Date: 20120125
  Receipt Date: 20120120
  Transmission Date: 20120608
  Serious: No
  Sender: FDA-Public Use
  Company Number: US-BIOGENIDEC-2012BI002560

PATIENT
  Age: 70 Year
  Sex: Female

DRUGS (1)
  1. AVONEX [Suspect]
     Indication: MULTIPLE SCLEROSIS
     Route: 030
     Dates: start: 19970325

REACTIONS (7)
  - PAIN IN EXTREMITY [None]
  - LUNG DISORDER [None]
  - WEIGHT DECREASED [None]
  - FATIGUE [None]
  - PRURITUS [None]
  - HAEMOPTYSIS [None]
  - CONFUSIONAL STATE [None]
